FAERS Safety Report 6016940-6 (Version None)
Quarter: 2008Q4

REPORT INFORMATION
  Report Type: 
  Country: None (occurrence: None)
  Receive Date: 20081219
  Receipt Date: 20061227
  Transmission Date: 20090506
  Serious: No
  Sender: FDA-Public Use
  Company Number: TEST00206004235

PATIENT
  Age: 7 Year
  Sex: Female

DRUGS (5)
  1. ANDROGEL [Suspect]
     Dosage: 5 GRAM(S) QD TRANSCUTANEOUS
     Dates: start: 20050801
  2. ANDROGEL [Suspect]
     Dosage: 5 GRAM(S) QD TRANSCUTANEOUS
     Dates: start: 20061001
  3. ASMANEX (MOMETASONE) [Concomitant]
  4. SINGULAIR [Concomitant]
  5. ZYRTEC [Concomitant]

REACTIONS (1)
  - HIRSUTISM [None]
